FAERS Safety Report 14326846 (Version 3)
Quarter: 2018Q1

REPORT INFORMATION
  Report Type: Spontaneous
  Country: US (occurrence: US)
  Receive Date: 20171227
  Receipt Date: 20180212
  Transmission Date: 20180509
  Serious: No
  Sender: FDA-Public Use
  Company Number: US-009507513-1711USA013346

PATIENT
  Age: 30 Year
  Sex: Female
  Weight: 88.44 kg

DRUGS (1)
  1. NEXPLANON [Suspect]
     Active Substance: ETONOGESTREL
     Indication: CONTRACEPTION
     Dosage: EVERY 3 YEARS, IMPLANT LEFT ARM
     Route: 059
     Dates: start: 20170622, end: 20180126

REACTIONS (16)
  - Device kink [Not Recovered/Not Resolved]
  - Abdominal pain lower [Unknown]
  - Rash [Unknown]
  - Dizziness [Unknown]
  - Headache [Unknown]
  - Dysgeusia [Unknown]
  - Implant site irritation [Recovered/Resolved]
  - Breast swelling [Unknown]
  - Vulvovaginal swelling [Unknown]
  - Hypoaesthesia [Unknown]
  - Menstruation irregular [Unknown]
  - Product quality issue [Unknown]
  - Implant site coldness [Recovered/Resolved]
  - Hormone level abnormal [Unknown]
  - Implant site pruritus [Recovered/Resolved]
  - Device breakage [Recovered/Resolved]

NARRATIVE: CASE EVENT DATE: 2017
